FAERS Safety Report 4291037-4 (Version None)
Quarter: 2004Q1

REPORT INFORMATION
  Report Type: 
  Country: None (occurrence: None)
  Receive Date: 20040211
  Receipt Date: 20031030
  Transmission Date: 20041129
  Serious: No
  Sender: FDA-Public Use
  Company Number: US-GLAXOSMITHKLINE-A0432260A

PATIENT
  Age: 55 Year
  Sex: Female

DRUGS (3)
  1. PAXIL [Suspect]
     Indication: DEPRESSION
     Dosage: 40MG PER DAY
     Route: 048
  2. ANTIHYPERTENSIVE [Concomitant]
  3. THYROID MEDICATION [Concomitant]

REACTIONS (1)
  - VISION BLURRED [None]
